FAERS Safety Report 23285426 (Version 3)
Quarter: 2024Q2

REPORT INFORMATION
  Report Type: Report from Study
  Country: US (occurrence: US)
  Receive Date: 20231211
  Receipt Date: 20240426
  Transmission Date: 20240715
  Serious: Yes (Other)
  Sender: FDA-Public Use
  Company Number: US-ABBVIE-5527296

PATIENT
  Sex: Female

DRUGS (2)
  1. RINVOQ [Suspect]
     Active Substance: UPADACITINIB
     Indication: Rheumatoid arthritis
     Route: 048
     Dates: start: 20230228
  2. RINVOQ [Suspect]
     Active Substance: UPADACITINIB
     Indication: Rheumatoid arthritis
     Dosage: LAST ADMIN DATE 2023
     Route: 048
     Dates: start: 20230116

REACTIONS (15)
  - Blindness [Unknown]
  - Visual impairment [Unknown]
  - Pneumonitis [Unknown]
  - Mass [Unknown]
  - Headache [Unknown]
  - Lung disorder [Unknown]
  - H1N1 influenza [Unknown]
  - Wound [Unknown]
  - Cataract [Unknown]
  - Asthma [Unknown]
  - COVID-19 [Recovered/Resolved]
  - COVID-19 [Unknown]
  - Illness [Unknown]
  - Exposure to communicable disease [Unknown]
  - Lung disorder [Unknown]

NARRATIVE: CASE EVENT DATE: 20230101
